FAERS Safety Report 6286183-X (Version None)
Quarter: 2009Q3

REPORT INFORMATION
  Report Type: 
  Country: None (occurrence: None)
  Receive Date: 20090728
  Receipt Date: 20090722
  Transmission Date: 20100115
  Serious: Yes (Other)
  Sender: FDA-Public Use
  Company Number: US-TEVA-202240USA

PATIENT
  Sex: Female
  Weight: 72.64 kg

DRUGS (2)
  1. PLAN B [Suspect]
     Indication: POST COITAL CONTRACEPTION
     Route: 048
     Dates: start: 20090523, end: 20090524
  2. PLAN B [Concomitant]

REACTIONS (6)
  - ABORTION SPONTANEOUS [None]
  - DRUG INEFFECTIVE [None]
  - FOETAL HEART RATE ABNORMAL [None]
  - PREGNANCY AFTER POST COITAL CONTRACEPTION [None]
  - UTERINE CONTRACTIONS ABNORMAL [None]
  - VAGINAL HAEMORRHAGE [None]
